FAERS Safety Report 4523543-9 (Version None)
Quarter: 2004Q4

REPORT INFORMATION
  Report Type: 
  Country: None (occurrence: None)
  Receive Date: 20041210
  Receipt Date: 20041201
  Transmission Date: 20050328
  Serious: Yes (Death, Hospitalization, Disabling)
  Sender: FDA-Public Use
  Company Number: US-ROCHE-388104

PATIENT
  Age: 90 Year
  Sex: Male
  Weight: 68 kg

DRUGS (4)
  1. XELODA [Suspect]
     Route: 048
     Dates: start: 20041103, end: 20041113
  2. PREVACID [Concomitant]
     Route: 048
  3. ASPIRIN [Concomitant]
     Route: 048
  4. MULTIVITAMIN NOS [Concomitant]

REACTIONS (9)
  - DERMATITIS [None]
  - DIARRHOEA [None]
  - DIHYDROPYRIMIDINE DEHYDROGENASE DEFICIENCY [None]
  - HAEMATOTOXICITY [None]
  - MUCOSAL INFLAMMATION [None]
  - NEUTROPENIC SEPSIS [None]
  - PYREXIA [None]
  - RASH [None]
  - SKIN ULCER [None]
